FAERS Safety Report 5386345-X (Version None)
Quarter: 2007Q3

REPORT INFORMATION
  Report Type: 
  Country: None (occurrence: None)
  Receive Date: 20070713
  Receipt Date: 20070702
  Transmission Date: 20080115
  Serious: Yes (Hospitalization)
  Sender: FDA-Public Use
  Company Number: US-ASTRAZENECA-2007UW02041

PATIENT
  Age: 532 Month
  Sex: Female
  Weight: 81.8 kg

DRUGS (2)
  1. SEROQUEL [Suspect]
     Indication: BIPOLAR DISORDER
     Route: 048
     Dates: start: 20000101, end: 20070301
  2. SEROQUEL [Suspect]
     Route: 048
     Dates: start: 20060301, end: 20060401

REACTIONS (4)
  - BRONCHITIS [None]
  - HYPERGLYCAEMIA [None]
  - PNEUMONIA [None]
  - TYPE 2 DIABETES MELLITUS [None]
